FAERS Safety Report 24923746 (Version 1)
Quarter: 2025Q1

REPORT INFORMATION
  Report Type: Spontaneous
  Country: US (occurrence: US)
  Receive Date: 20250204
  Receipt Date: 20250204
  Transmission Date: 20250408
  Serious: No
  Sender: AMGEN
  Company Number: US-AMGEN-USASP2025015909

PATIENT
  Age: 61 Year
  Sex: Female

DRUGS (2)
  1. EVENITY [Suspect]
     Active Substance: ROMOSOZUMAB-AQQG
     Indication: Product used for unknown indication
     Dosage: UNK UNK, QMO (GETS THE FULL DOUBLE INEJCTIONS)
     Route: 058
     Dates: start: 20241017
  2. MOMETASONE [Concomitant]
     Active Substance: MOMETASONE
     Indication: Arthropod bite

REACTIONS (5)
  - Injection site rash [Not Recovered/Not Resolved]
  - Injection site swelling [Unknown]
  - Injection site pruritus [Unknown]
  - Injection site pain [Unknown]
  - Dry mouth [Unknown]

NARRATIVE: CASE EVENT DATE: 20241212
